FAERS Safety Report 8859056 (Version 3)
Quarter: 2013Q4

REPORT INFORMATION
  Report Type: Spontaneous
  Country: JP (occurrence: JP)
  Receive Date: 20121024
  Receipt Date: 20131224
  Transmission Date: 20140711
  Serious: Yes (Death)
  Sender: FDA-Public Use
  Company Number: JP-SANOFI-AVENTIS-2012SA075954

PATIENT
  Age: 75 Year
  Sex: Male

DRUGS (3)
  1. ELPLAT [Suspect]
     Indication: COLON CANCER
     Dosage: SOLUTION FOR INFUSION INJECTION
     Route: 041
  2. CAPECITABINE [Suspect]
     Indication: COLON CANCER
     Route: 048
  3. AVASTIN [Suspect]
     Indication: COLON CANCER
     Route: 041

REACTIONS (2)
  - Spinal cord infarction [Fatal]
  - Neuropathy peripheral [Unknown]
